FAERS Safety Report 24138880 (Version 1)
Quarter: 2024Q3

REPORT INFORMATION
  Report Type: Report from Study
  Country: DE (occurrence: DE)
  Receive Date: 20240726
  Receipt Date: 20240726
  Transmission Date: 20241016
  Serious: Yes (Hospitalization, Other)
  Sender: ABBVIE
  Company Number: DE-ABBVIE-5850680

PATIENT
  Sex: Male

DRUGS (2)
  1. CARBIDOPA\LEVODOPA [Suspect]
     Active Substance: CARBIDOPA\LEVODOPA
     Indication: Parkinson^s disease
     Dosage: MD: 8,0ML; CRD: 2,7ML/H; ED: 1,3ML
     Route: 050
  2. CARBIDOPA\LEVODOPA [Suspect]
     Active Substance: CARBIDOPA\LEVODOPA

REACTIONS (10)
  - Hypertensive urgency [Unknown]
  - Device dislocation [Recovered/Resolved]
  - Thrombosis [Unknown]
  - Mitral valve stenosis [Unknown]
  - Blood pressure increased [Unknown]
  - Device occlusion [Unknown]
  - Hypothyroidism [Unknown]
  - Pharyngitis [Recovering/Resolving]
  - Breast ulceration [Recovering/Resolving]
  - Aortic stenosis [Unknown]
